FAERS Safety Report 24761095 (Version 1)
Quarter: 2024Q4

REPORT INFORMATION
  Report Type: Spontaneous
  Country: US (occurrence: US)
  Receive Date: 20241220
  Receipt Date: 20241220
  Transmission Date: 20250115
  Serious: Yes (Other)
  Sender: AMGEN
  Company Number: US-AMGEN-USASP2024247187

PATIENT

DRUGS (5)
  1. PEGFILGRASTIM [Suspect]
     Active Substance: PEGFILGRASTIM
     Indication: Prophylaxis
     Dosage: UNK, ON DAY 16 OF CYCLES 2-7,
     Route: 065
  2. DINACICLIB [Concomitant]
     Active Substance: DINACICLIB
     Dosage: UNK, AS A 2-HOUR INFUSION ON DAYS 1, 8, AND 15 OF A 28-DAY CYCLE BEGINNING ON CYCLE 2 DAY 1 AND CONT
  3. OFATUMUMAB [Concomitant]
     Active Substance: OFATUMUMAB
     Dosage: UNK, (WEEKLY X 8, MONTHLY X 4) STARTING ON CYCLE 1 DAY 1.
  4. CIPROFLOXACIN [Concomitant]
     Active Substance: CIPROFLOXACIN
  5. SULFAMETHOXAZOLE\TRIMETHOPRIM [Concomitant]
     Active Substance: SULFAMETHOXAZOLE\TRIMETHOPRIM

REACTIONS (12)
  - Hyperglycaemia [Unknown]
  - Hypocalcaemia [Unknown]
  - Hypophosphataemia [Unknown]
  - Leukopenia [Unknown]
  - Anaemia [Unknown]
  - Thrombocytopenia [Unknown]
  - Neutropenia [Unknown]
  - Pleural infection [Unknown]
  - Pneumonia [Unknown]
  - Sepsis [Unknown]
  - Chronic lymphocytic leukaemia [Unknown]
  - Lymphocytic lymphoma [Unknown]
